FAERS Safety Report 8292465 (Version 2)
Quarter: 2012Q4

REPORT INFORMATION
  Report Type: 
  Country: US (occurrence: US)
  Receive Date: 20111215
  Receipt Date: 20121004
  Transmission Date: 20130627
  Serious: Yes (Other)
  Sender: FDA-Public Use
  Company Number: US-BAYER-2011-117911

PATIENT
  Age: 22 Year
  Sex: Female
  Weight: 73.47 kg

DRUGS (1)
  1. MIRENA [Suspect]
     Indication: CONTRACEPTION
     Dosage: 20 mcg/24hr, CONT
     Route: 015
     Dates: start: 20111031

REACTIONS (5)
  - Abortion spontaneous [None]
  - Pregnancy with contraceptive device [Recovered/Resolved]
  - Amenorrhoea [Recovered/Resolved]
  - Headache [None]
  - Haemorrhage in pregnancy [None]
